FAERS Safety Report 25176093 (Version 2)
Quarter: 2025Q2

REPORT INFORMATION
  Report Type: Spontaneous
  Country: US (occurrence: US)
  Receive Date: 20250409
  Receipt Date: 20250524
  Transmission Date: 20250717
  Serious: Yes (Hospitalization)
  Sender: AUROBINDO
  Company Number: US-AUROBINDO-AUR-APL-2025-017985

PATIENT
  Age: 21 Year
  Sex: Male

DRUGS (4)
  1. METOPROLOL [Suspect]
     Active Substance: METOPROLOL
     Indication: Arrhythmia
     Route: 065
  2. ADENOSINE [Concomitant]
     Active Substance: ADENOSINE
     Indication: Supraventricular tachycardia
     Route: 065
  3. AMIODARONE [Concomitant]
     Active Substance: AMIODARONE
     Indication: Junctional ectopic tachycardia
     Route: 040
  4. DILTIAZEM [Concomitant]
     Active Substance: DILTIAZEM
     Indication: Junctional ectopic tachycardia
     Route: 040

REACTIONS (3)
  - Palpitations [Recovered/Resolved]
  - Product dose omission issue [Unknown]
  - Treatment noncompliance [Unknown]
